FAERS Safety Report 11898932 (Version 1)
Quarter: 2016Q1

REPORT INFORMATION
  Report Type: Spontaneous
  Country: US (occurrence: US)
  Receive Date: 20160108
  Receipt Date: 20160108
  Transmission Date: 20160526
  Serious: No
  Sender: FDA-Public Use
  Company Number: US-PFIZER INC-2015442019

PATIENT
  Age: 68 Year
  Sex: Female

DRUGS (1)
  1. IBRANCE [Suspect]
     Active Substance: PALBOCICLIB
     Indication: BREAST CANCER FEMALE
     Dosage: 100 MG, CYCLIC (EVERY DAY FOR 21 DAYS THEN 7 DAYS OFF)
     Route: 048

REACTIONS (4)
  - Nausea [Unknown]
  - Chromaturia [Unknown]
  - Stomatitis [Unknown]
  - Pollakiuria [Unknown]
